FAERS Safety Report 9738922 (Version 7)
Quarter: 2019Q4

REPORT INFORMATION
  Report Type: Report from Study
  Country: ES (occurrence: ES)
  Receive Date: 20131209
  Receipt Date: 20191022
  Transmission Date: 20200122
  Serious: Yes (Hospitalization)
  Sender: FDA-Public Use
  Company Number: ES-ROCHE-1310545

PATIENT
  Age: 58 Year
  Sex: Female

DRUGS (23)
  1. TRAMADOL. [Concomitant]
     Active Substance: TRAMADOL
     Dosage: PROPHYLAXIS OF PAIN
     Route: 065
     Dates: start: 2013, end: 20140114
  2. ALLOPURINOL. [Concomitant]
     Active Substance: ALLOPURINOL
     Dosage: PROPHYLAXIS OF HYPERURICEMIA
     Route: 065
     Dates: start: 2013
  3. ESOMEPRAZOLE. [Concomitant]
     Active Substance: ESOMEPRAZOLE MAGNESIUM
     Route: 065
     Dates: start: 20150203
  4. PERTUZUMAB. [Suspect]
     Active Substance: PERTUZUMAB
     Dosage: MAINTENANCE DOSE, LAST DOSE PRIOR TO SAE ONSET: 08/NOV/2013
     Route: 042
     Dates: start: 20131108
  5. AMOXICILLIN;CLAVULANATE POTASSIUM [Concomitant]
     Active Substance: AMOXICILLIN\CLAVULANATE POTASSIUM
     Dosage: 875/125
     Route: 065
     Dates: start: 20150120, end: 20150127
  6. TRASTUZUMAB. [Suspect]
     Active Substance: TRASTUZUMAB
     Dosage: MAINTENANCE DOSE
     Route: 042
     Dates: start: 20131108
  7. SIMVASTATINE [Concomitant]
     Active Substance: SIMVASTATIN
     Route: 065
     Dates: start: 20131122, end: 20131219
  8. PACLITAXEL. [Suspect]
     Active Substance: PACLITAXEL
     Indication: HER-2 POSITIVE BREAST CANCER
     Dosage: LAST DOSE PRIOR TO SAE:08/NOV/2013
     Route: 065
     Dates: start: 20131018, end: 20131115
  9. METFORMIN [Concomitant]
     Active Substance: METFORMIN HYDROCHLORIDE
     Route: 065
     Dates: start: 20131115
  10. TARGIN [Concomitant]
     Active Substance: NALOXONE HYDROCHLORIDE\OXYCODONE HYDROCHLORIDE
     Dosage: 5/2.5MG
     Route: 065
     Dates: start: 20140117, end: 20140130
  11. TRASTUZUMAB. [Suspect]
     Active Substance: TRASTUZUMAB
     Indication: HER-2 POSITIVE BREAST CANCER
     Dosage: LOADING DOSE, RECENT DOSE PRIOR TO EVENT ONSET ON 08/NOV/2013 (429 MG)
     Route: 041
     Dates: start: 20131018, end: 20131018
  12. PACLITAXEL. [Suspect]
     Active Substance: PACLITAXEL
     Route: 065
     Dates: start: 20131129
  13. TOBRAMYCIN. [Concomitant]
     Active Substance: TOBRAMYCIN
     Route: 065
     Dates: start: 20140627, end: 20140717
  14. FOSFOMICINA [FOSFOMYCIN] [Concomitant]
     Active Substance: FOSFOMYCIN
     Route: 065
     Dates: start: 20140627, end: 20140717
  15. PERTUZUMAB. [Suspect]
     Active Substance: PERTUZUMAB
     Indication: HER-2 POSITIVE BREAST CANCER
     Dosage: LOADING DOSE
     Route: 042
     Dates: start: 20131018, end: 20131018
  16. ALISKIREN [Concomitant]
     Active Substance: ALISKIREN
     Route: 065
     Dates: start: 20131115, end: 20131115
  17. FENOFIBRATE. [Concomitant]
     Active Substance: FENOFIBRATE
     Route: 065
     Dates: start: 20131115, end: 20131115
  18. OMEPRAZOLE. [Concomitant]
     Active Substance: OMEPRAZOLE
     Dosage: PROPHYLAXIS OF GASTRIC PROTECTION
     Route: 065
     Dates: start: 20131123, end: 20131219
  19. OMEPRAZOLE. [Concomitant]
     Active Substance: OMEPRAZOLE
     Route: 065
     Dates: start: 20131115
  20. ENALAPRIL [Concomitant]
     Active Substance: ENALAPRIL
     Dosage: PROPHYLAXIS OF HYPERTENSION
     Route: 065
     Dates: start: 20131123, end: 20140221
  21. EUCREAS [Concomitant]
     Active Substance: METFORMIN HYDROCHLORIDE\VILDAGLIPTIN
     Dosage: 50/100 MG
     Route: 065
     Dates: start: 20131122, end: 20131219
  22. SIMVASTATINE [Concomitant]
     Active Substance: SIMVASTATIN
     Route: 065
     Dates: start: 20131115
  23. CIPROFLOXACINE [CIPROFLOXACIN] [Concomitant]
     Active Substance: CIPROFLOXACIN
     Route: 065
     Dates: start: 20131108, end: 20140109

REACTIONS (1)
  - Renal impairment [Recovered/Resolved]

NARRATIVE: CASE EVENT DATE: 20131115
